FAERS Safety Report 9692293 (Version 1)
Quarter: 2013Q4

REPORT INFORMATION
  Report Type: Other
  Country: DE (occurrence: DE)
  Receive Date: 20131118
  Receipt Date: 20131118
  Transmission Date: 20140711
  Serious: Yes (Hospitalization, Other)
  Sender: FDA-Public Use
  Company Number: DE-LUPIN PHARMACEUTICALS INC.-E2B_00001429

PATIENT
  Sex: Male
  Weight: 2.86 kg

DRUGS (7)
  1. LEVETIRACETAM [Suspect]
     Indication: EPILEPSY
     Dosage: (1000-250-1000)MG/D
     Route: 064
  2. LEVETIRACETAM [Suspect]
     Indication: EPILEPSY
     Dosage: (1000-250-1000)MG/D
     Route: 064
  3. LEVETIRACETAM [Suspect]
     Indication: EPILEPSY
     Dosage: (1000-250-1000)MG/D
     Route: 064
  4. LEVETIRACETAM [Suspect]
     Indication: EPILEPSY
     Dosage: (1000-250-1000)MG/D
     Route: 064
  5. LAMOTRIGIN [Suspect]
     Indication: EPILEPSY
     Route: 064
  6. SUFENTANIL [Concomitant]
     Indication: PAIN
     Route: 064
     Dates: start: 20081020, end: 20081020
  7. ROPIVACAIN [Concomitant]
     Indication: PAIN
     Route: 064

REACTIONS (5)
  - Patent ductus arteriosus [Recovered/Resolved]
  - Agitation neonatal [Recovered/Resolved]
  - Portal vein thrombosis [Recovered/Resolved]
  - Apnoea neonatal [Recovered/Resolved]
  - Feeding disorder neonatal [Recovered/Resolved]
